FAERS Safety Report 4745628-4 (Version None)
Quarter: 2005Q3

REPORT INFORMATION
  Report Type: 
  Country: None (occurrence: None)
  Receive Date: 20050815
  Receipt Date: 20050728
  Transmission Date: 20060218
  Serious: Yes (Hospitalization)
  Sender: FDA-Public Use
  Company Number: S05-SWI-02776-01

PATIENT
  Age: 81 Year
  Sex: Female

DRUGS (12)
  1. SEROPRAM (CITALOPRAM HYDROBROMIDE) [Suspect]
     Dosage: 20 MG QD PO
     Route: 048
  2. SINTROM [Suspect]
     Dates: end: 20050528
  3. SINTROM [Suspect]
     Dates: start: 20050606, end: 20050622
  4. ASPIRIN [Suspect]
     Dosage: 100 MG QD PO
     Route: 048
     Dates: end: 20050528
  5. ASPIRIN [Suspect]
     Dosage: 100 MG QD PO
     Route: 048
     Dates: start: 20050606, end: 20050622
  6. ENALAPRIL MALEATE [Concomitant]
  7. BELOC (METOPROLOL TARTRATE) [Concomitant]
  8. TOREM (TORASEMIDE) [Concomitant]
  9. PANTOPRAZOLE SODIUM [Concomitant]
  10. ATORVASTATIN CALCIUM [Concomitant]
  11. NEO-MERCAZOLE TAB [Concomitant]
  12. LEXOTANIL (BROMAZEPAM) [Concomitant]

REACTIONS (5)
  - ANAEMIA [None]
  - BLOOD PRESSURE SYSTOLIC INCREASED [None]
  - EPISTAXIS [None]
  - INTERNATIONAL NORMALISED RATIO INCREASED [None]
  - PROTHROMBIN TIME PROLONGED [None]
